FAERS Safety Report 8169959-3 (Version None)
Quarter: 2012Q1

REPORT INFORMATION
  Report Type: 
  Country: None (occurrence: None)
  Receive Date: 20120228
  Receipt Date: 20120228
  Transmission Date: 20120608
  Serious: Yes (Life-Threatening, Other)
  Sender: FDA-Public Use
  Company Number: None

PATIENT
  Age: 49 Year
  Sex: Male
  Weight: 83.007 kg

DRUGS (1)
  1. CRESTOR [Suspect]
     Indication: MYOCARDIAL INFARCTION
     Dosage: 10 MG
     Route: 048
     Dates: start: 20110301, end: 20120227

REACTIONS (1)
  - MYOCARDIAL INFARCTION [None]
